FAERS Safety Report 7003600-8 (Version None)
Quarter: 2010Q3

REPORT INFORMATION
  Report Type: 
  Country: None (occurrence: None)
  Receive Date: 20100917
  Receipt Date: 20100831
  Transmission Date: 20110219
  Serious: Yes (Hospitalization)
  Sender: FDA-Public Use
  Company Number: 54973 AE # 309

PATIENT
  Age: 4 Month
  Sex: Male

DRUGS (1)
  1. TEETHING TABLETS [Suspect]
     Indication: TEETHING
     Dates: start: 20100822, end: 20100830

REACTIONS (1)
  - BOTULISM [None]
